FAERS Safety Report 20610446 (Version 1)
Quarter: 2022Q1

REPORT INFORMATION
  Report Type: Report from Study
  Country: US (occurrence: US)
  Receive Date: 20220318
  Receipt Date: 20220318
  Transmission Date: 20220423
  Serious: Yes (Hospitalization)
  Sender: FDA-Public Use
  Company Number: US-G1-000493

PATIENT
  Age: 49 Year
  Sex: Female
  Weight: 105.1 kg

DRUGS (22)
  1. TRILACICLIB [Suspect]
     Active Substance: TRILACICLIB
     Indication: Myelosuppression
     Dosage: TIME INTERVAL: CYCLICAL; 240 MG/M2 ON DAY 1 AND 2 OF EACH 14-DAY CYCLE
     Route: 041
     Dates: start: 20211228, end: 20220209
  2. 1325138 (GLOBALC3Sep21): bisacodyl [Concomitant]
     Indication: Constipation
     Route: 048
     Dates: start: 2012
  3. 1223855 (GLOBALC3Sep21): Compazine [Concomitant]
     Indication: Prophylaxis of nausea and vomiting
     Dosage: TIME INTERVAL: AS NECESSARY
     Route: 048
     Dates: start: 20211208
  4. 3401468 (GLOBALC3Sep21): codeine? guaifenesin [Concomitant]
     Indication: Cough
     Dosage: TIME INTERVAL: AS NECESSARY
     Route: 048
     Dates: start: 20211129
  5. BEVACIZUMAB [Suspect]
     Active Substance: BEVACIZUMAB
     Indication: Colon cancer metastatic
     Dosage: TIME INTERVAL: CYCLICAL; 5 MG/KG ON DAY 1 OF EACH 14-DAY CYCLE
     Route: 041
     Dates: start: 20211228, end: 20220208
  6. FLUOROURACIL [Suspect]
     Active Substance: FLUOROURACIL
     Indication: Colon cancer metastatic
     Dosage: TIME INTERVAL: CYCLICAL; 2400 MG/M2 BY CONTINUOUS INFUSION OVER 48 HOURS STARTING ON DAY 1 OF EAC...
     Route: 041
     Dates: start: 20211228, end: 20220210
  7. IRINOTECAN [Suspect]
     Active Substance: IRINOTECAN
     Indication: Colon cancer metastatic
     Dosage: TIME INTERVAL: CYCLICAL; 165 MG/M2 ON DAY 1 OF EACH 14-DAY CYCLE
     Route: 041
     Dates: start: 20211228, end: 20220208
  8. LEUCOVORIN [Suspect]
     Active Substance: LEUCOVORIN
     Indication: Colon cancer metastatic
     Dosage: TIME INTERVAL: CYCLICAL; 400 MG/M2 ON DAY 1 OF EACH 14-DAY CYCLE
     Route: 041
     Dates: start: 20211228, end: 20220208
  9. OXALIPLATIN [Suspect]
     Active Substance: OXALIPLATIN
     Indication: Colon cancer metastatic
     Dosage: TIME INTERVAL: CYCLICAL; 85 MG/M2 ON DAY 1 OF EACH 14-DAY CYCLE
     Route: 041
     Dates: start: 20211228, end: 20220208
  10. 1324650 (GLOBALC3Sep21): spironolactone [Concomitant]
     Indication: Hirsutism
     Route: 048
     Dates: start: 1992
  11. 4675139 (GLOBALC3Sep21): Breztri Aerosphere [Concomitant]
     Dosage: 160, BID
     Route: 055
     Dates: start: 20211117
  12. 1263019 (GLOBALC3Sep21): Mucinex ER [Concomitant]
     Indication: Cough
     Route: 048
     Dates: start: 20211208
  13. 1328876 (GLOBALC3Sep21): Vitamin D3 [Concomitant]
     Indication: Vitamin supplementation
     Dosage: 5000, QD
     Route: 048
     Dates: start: 20211208
  14. 1328822 (GLOBALC3Sep21): Ventolin HFA [Concomitant]
     Indication: Dyspnoea
     Dosage: 90, Q6H
     Route: 055
     Dates: start: 2019
  15. 1325094 (GLOBALC3Sep21): benzonatate [Concomitant]
     Indication: Cough
     Dosage: TIME INTERVAL: 0.33333333 DAYS
     Route: 048
     Dates: start: 20211208
  16. 1784934 (GLOBALC3Sep21): alpha lipoic acid [Concomitant]
     Indication: Prophylaxis
     Route: 048
     Dates: start: 20211208
  17. 3218698 (GLOBALC3Sep21): L? Methylfolate [Concomitant]
     Indication: Folate deficiency
     Route: 048
     Dates: start: 20211209
  18. 1782793 (GLOBALC3Sep21): levofloxacin [Concomitant]
     Indication: Bronchitis
     Route: 048
     Dates: start: 20211210
  19. 2650411 (GLOBALC3Sep21): Eliquis [Concomitant]
     Indication: Pulmonary embolism
     Route: 048
     Dates: start: 20211214
  20. 2650411 (GLOBALC3Sep21): Eliquis [Concomitant]
     Indication: Pulmonary embolism
     Route: 048
     Dates: start: 20211221
  21. 1326713 (GLOBALC3Sep21): Ketorolac [Concomitant]
     Indication: Procedural pain
     Dosage: TIME INTERVAL: 0.33333333 DAYS
     Route: 048
     Dates: start: 20211201
  22. 1325274 (GLOBALC3Sep21): Hydrocodone [Concomitant]
     Indication: Procedural pain
     Route: 048
     Dates: start: 20211201

REACTIONS (1)
  - Syncope [Recovered/Resolved]

NARRATIVE: CASE EVENT DATE: 20220225
